FAERS Safety Report 20854849 (Version 1)
Quarter: 2022Q2

REPORT INFORMATION
  Report Type: Spontaneous
  Country: US (occurrence: None)
  Receive Date: 20220520
  Receipt Date: 20220520
  Transmission Date: 20220721
  Serious: Yes (Hospitalization)
  Sender: FDA-Public Use
  Company Number: None

PATIENT
  Age: 34 Year
  Sex: Female
  Weight: 98.43 kg

DRUGS (1)
  1. TAXOTERE [Suspect]
     Active Substance: DOCETAXEL
     Dates: end: 20220504

REACTIONS (6)
  - Chest pain [None]
  - Pain [None]
  - Nausea [None]
  - Headache [None]
  - Neutrophil count decreased [None]
  - Total lung capacity decreased [None]

NARRATIVE: CASE EVENT DATE: 20220515
